FAERS Safety Report 6692601-5 (Version None)
Quarter: 2010Q2

REPORT INFORMATION
  Report Type: 
  Country: None (occurrence: None)
  Receive Date: 20100422
  Receipt Date: 20100412
  Transmission Date: 20101027
  Serious: Yes (Other)
  Sender: FDA-Public Use
  Company Number: JP-PFIZER INC-2010038679

PATIENT
  Age: 76 Year
  Sex: Male
  Weight: 43 kg

DRUGS (13)
  1. VFEND [Suspect]
     Indication: BRONCHOPULMONARY ASPERGILLOSIS
     Dosage: 200 MG, 2X/DAY
     Route: 042
     Dates: start: 20100316, end: 20100323
  2. AMINOPHYLLINE HYDRATE [Concomitant]
     Dosage: 125 MG 2XDAY DRIP
     Route: 042
     Dates: start: 20100308
  3. ORGADRONE [Concomitant]
     Dosage: 1.9 MG, 2X/DAY DRIP
     Route: 042
     Dates: start: 20100308
  4. BISOLVON [Concomitant]
     Indication: ASTHMA
     Dosage: 4 MG, 1X/DAY DRIP
     Route: 042
     Dates: start: 20100308, end: 20100406
  5. CEFTRIAXONE SODIUM [Concomitant]
     Indication: PNEUMONIA
     Dosage: 1 G, 2X/DAY DRIP
     Route: 042
     Dates: start: 20100308, end: 20100316
  6. CEFTAZIDIME [Concomitant]
     Indication: LUNG INFECTION PSEUDOMONAL
     Dosage: 1 G, 2X/DAY DRIP
     Route: 042
     Dates: start: 20100317, end: 20100330
  7. HUMULIN R [Concomitant]
     Indication: DIABETES MELLITUS
     Dosage: 10 UNIT, 3X/DAY
     Route: 058
     Dates: start: 20100308
  8. PRIDOL [Concomitant]
     Dosage: 40 MG, 2X/DAY DRIP
     Route: 042
     Dates: start: 20100312, end: 20100324
  9. AMPHOTERICIN B [Concomitant]
     Indication: CANDIDIASIS
     Route: 048
     Dates: start: 20100315, end: 20100328
  10. GALENIC /FLUTICASONE/SALMETEROL/ [Concomitant]
     Dosage: 500 UG, 2X/DAY
     Route: 045
     Dates: start: 20100309, end: 20100328
  11. ALOTEC [Concomitant]
     Indication: ASTHMA
     Dosage: 0.3 ML, 3X/DAY
     Route: 045
     Dates: start: 20100309, end: 20100328
  12. HUMALOG [Concomitant]
     Indication: DIABETES MELLITUS
     Route: 058
  13. BISOLVON [Concomitant]
     Dosage: UNK
     Route: 045
     Dates: start: 20100309, end: 20100328

REACTIONS (1)
  - MUSCULAR WEAKNESS [None]
